FAERS Safety Report 7627021-X (Version None)
Quarter: 2011Q3

REPORT INFORMATION
  Report Type: 
  Country: None (occurrence: None)
  Receive Date: 20110714
  Receipt Date: 20110415
  Transmission Date: 20111222
  Serious: Yes (Other)
  Sender: FDA-Public Use
  Company Number: 2009AP004554

PATIENT
  Age: 45 Year
  Sex: Female
  Weight: 93.8946 kg

DRUGS (4)
  1. INSULIN [Concomitant]
  2. METFORMIN HCL [Concomitant]
  3. CETIRIZINE HYDROCHLORIDE [Suspect]
     Dosage: ;PO
  4. WARFARIN SODIUM [Suspect]
     Dosage: 5 MG;QD;PO , 15 MG;QD;PO
     Route: 048

REACTIONS (2)
  - INTERNATIONAL NORMALISED RATIO DECREASED [None]
  - PRODUCT COMMINGLING [None]
